FAERS Safety Report 19403028 (Version 1)
Quarter: 2021Q2

REPORT INFORMATION
  Report Type: Spontaneous
  Country: DE (occurrence: DE)
  Receive Date: 20210611
  Receipt Date: 20210611
  Transmission Date: 20210717
  Serious: Yes (Hospitalization)
  Sender: FDA-Public Use
  Company Number: DE-009507513-2106DEU001503

PATIENT
  Age: 57 Year
  Sex: Male

DRUGS (17)
  1. ANORO [Concomitant]
     Active Substance: UMECLIDINIUM BROMIDE\VILANTEROL TRIFENATATE
     Dosage: 55/22 MICRO?G, 1?0?0?0, INHALABLE POWDER
  2. RIVAROXABAN [Concomitant]
     Active Substance: RIVAROXABAN
     Dosage: 20 MG, 1?0?0?0, TABLET
  3. RAMIPRIL. [Concomitant]
     Active Substance: RAMIPRIL
     Dosage: 5 MG, 1?0?1?0, TABLETS
  4. IBUPROFEN. [Concomitant]
     Active Substance: IBUPROFEN
     Dosage: 400 MG, 1?1?1?0, TABLET
  5. FOLSAEURE [Concomitant]
     Active Substance: FOLIC ACID
     Dosage: 0.4 MG, 1?0?1?0, TABLET
  6. LERCANIDIPINE [Concomitant]
     Active Substance: LERCANIDIPINE
     Dosage: 10 MG, 1?0?0?0, TABLET
  7. L THYROXIN AVENTIS [Concomitant]
     Dosage: 50 MICRO?G, 1?0?0?0, TABLETS
  8. PEMBROLIZUMAB. [Suspect]
     Active Substance: PEMBROLIZUMAB
     Dosage: ACCORDING TO SCHEME, SOLUTION FOR INJECTION / INFUSION
  9. ACETYLSALICYLSAEURE [Concomitant]
     Active Substance: ASPIRIN
     Dosage: 100 MG, 0?1?0?0, TABLETS
  10. DEXAMETHASONE. [Concomitant]
     Active Substance: DEXAMETHASONE
     Dosage: 4 MG, ACCORDING TO PLAN, TABLETS
  11. NALOXONE;TILIDINE [Concomitant]
     Active Substance: NALOXONE HYDROCHLORIDE\TILIDINE HYDROCHLORIDE
     Dosage: 8/100 MG, 1?0?1?0, SUSTAINED?RELEASE TABLETS
  12. PEMETREXED. [Suspect]
     Active Substance: PEMETREXED
     Dosage: ACCORDING TO SCHEME, SOLUTION FOR INJECTION/INFUSION
  13. ATORVASTATIN [Concomitant]
     Active Substance: ATORVASTATIN
     Dosage: 40 MG, 0?0?1?0, TABLET
  14. IBUPROFEN. [Concomitant]
     Active Substance: IBUPROFEN
     Dosage: 400 MG, IF REQUIRED, TABLETS
  15. DICLOFENAC [Concomitant]
     Active Substance: DICLOFENAC
     Dosage: 9.31 MG, IF REQUIRED, GEL
  16. METAMIZOLE [Concomitant]
     Active Substance: METAMIZOLE
     Dosage: 500 MG, IF NECESSARY, TABLETS
  17. ZOPICLON [Concomitant]
     Active Substance: ZOPICLONE
     Dosage: 7.5 MG, IF NECESSARY, TABLETS

REACTIONS (2)
  - Paraesthesia [Unknown]
  - Musculoskeletal pain [Unknown]
